FAERS Safety Report 19714186 (Version 1)
Quarter: 2021Q3

REPORT INFORMATION
  Report Type: Spontaneous
  Country: US (occurrence: US)
  Receive Date: 20210818
  Receipt Date: 20210818
  Transmission Date: 20211014
  Serious: No
  Sender: FDA-Public Use
  Company Number: US-CELLTRION INC.-2021US007001

PATIENT

DRUGS (2)
  1. TRUXIMA [Suspect]
     Active Substance: RITUXIMAB-ABBS
     Indication: NEPHRITIC SYNDROME
     Dosage: 500 MILLIGRAM FREQUENCY X1
     Dates: start: 20210505
  2. TRUXIMA [Suspect]
     Active Substance: RITUXIMAB-ABBS
     Dosage: 500 MILLIGRAM FREQUENCY X1
     Dates: start: 20210520

REACTIONS (1)
  - Off label use [Unknown]
